FAERS Safety Report 19703070 (Version 1)
Quarter: 2021Q3

REPORT INFORMATION
  Report Type: Spontaneous
  Country: US (occurrence: US)
  Receive Date: 20210816
  Receipt Date: 20210816
  Transmission Date: 20211014
  Serious: Yes (Other)
  Sender: FDA-Public Use
  Company Number: US-DRREDDYS-SPO/USA/21/0138763

PATIENT
  Age: 24 Year
  Sex: Female

DRUGS (4)
  1. CLARAVIS [Suspect]
     Active Substance: ISOTRETINOIN
     Indication: PRODUCT USED FOR UNKNOWN INDICATION
     Dosage: RMA ISSUE DATE:27 APRIL 2017 6:24:38 PM,1 JUNE 2017 8:03:25 PM,29 JUNE 2017 4:49:35 PM,3 AUGUST 2017
  2. ZENATANE [Suspect]
     Active Substance: ISOTRETINOIN
     Dosage: RMA ISSUE DATE:10 MAY 2021 12:00:00 AM
  3. ZENATANE [Suspect]
     Active Substance: ISOTRETINOIN
     Indication: PRODUCT USED FOR UNKNOWN INDICATION
     Dosage: RMA ISSUE DATE:8 APRIL 2021 12:00:00 AM,10 JUNE 2021 12:00:00 AM
     Dates: start: 20210408, end: 20210710
  4. CLARAVIS [Suspect]
     Active Substance: ISOTRETINOIN
     Dosage: RMA ISSUE DATE:22 OCTOBER 2019 9:21:01 PM,26 NOVEMBER 2019 1:42:29 PM,25 JANUARY 2020 12:15:19 PM
     Dates: start: 2019, end: 2020

REACTIONS (2)
  - Abortion induced [Unknown]
  - Exposure during pregnancy [Unknown]
